FAERS Safety Report 9596635 (Version 1)
Quarter: 2013Q4

REPORT INFORMATION
  Report Type: Spontaneous
  Country: US (occurrence: US)
  Receive Date: 20131004
  Receipt Date: 20131004
  Transmission Date: 20140711
  Serious: Yes (Other)
  Sender: FDA-Public Use
  Company Number: CHPA2013US015057

PATIENT
  Age: 83 Year
  Sex: Male

DRUGS (1)
  1. MAALOX [Suspect]
     Dosage: UNK,UNK
     Dates: end: 2012

REACTIONS (1)
  - Amnesia [Not Recovered/Not Resolved]
